FAERS Safety Report 24848283 (Version 1)
Quarter: 2025Q1

REPORT INFORMATION
  Report Type: Spontaneous
  Country: US (occurrence: US)
  Receive Date: 20250116
  Receipt Date: 20250116
  Transmission Date: 20250408
  Serious: Yes (Other)
  Sender: CATALYST PHARMA
  Company Number: US-CATALYST PHARMACEUTICALS, INC-US-CATA-24-00797

PATIENT
  Age: 60 Year
  Sex: Female

DRUGS (3)
  1. FYCOMPA [Suspect]
     Active Substance: PERAMPANEL
     Indication: Product used for unknown indication
     Dosage: ONE 4 MG TABLET EVERY NIGHT
     Route: 048
     Dates: end: 202406
  2. FYCOMPA [Suspect]
     Active Substance: PERAMPANEL
     Dosage: TOOK 2 PILLS THE FIRST DAY SHE RECEIVED THE PILLS
     Route: 048
     Dates: start: 2024, end: 2024
  3. FYCOMPA [Suspect]
     Active Substance: PERAMPANEL
     Dosage: ONE 4 MG TABLET EVERY NIGHT
     Route: 048
     Dates: start: 2024

REACTIONS (2)
  - Seizure [Unknown]
  - Product dose omission issue [Unknown]

NARRATIVE: CASE EVENT DATE: 20240601
